FAERS Safety Report 8313727 (Version 2)
Quarter: 2020Q4

REPORT INFORMATION
  Report Type: Spontaneous
  Country: GR (occurrence: GR)
  Receive Date: 20111228
  Receipt Date: 20201203
  Transmission Date: 20210114
  Serious: Yes (Other)
  Sender: FDA-Public Use
  Company Number: PHHY2011GR111090

PATIENT
  Age: 68 Year
  Sex: Female

DRUGS (2)
  1. ETANERCEPT [Suspect]
     Active Substance: ETANERCEPT
     Indication: PSORIATIC ARTHROPATHY
     Dosage: UNK
     Route: 065
  2. CICLOSPORIN [Suspect]
     Active Substance: CYCLOSPORINE
     Indication: PSORIATIC ARTHROPATHY
     Dosage: UNK
     Route: 065

REACTIONS (17)
  - Ear deformity acquired [Recovered/Resolved]
  - Skin exfoliation [Recovered/Resolved]
  - Skin plaque [Recovered/Resolved]
  - Oedema peripheral [Recovered/Resolved]
  - Nose deformity [Recovered/Resolved]
  - Pyrexia [Recovered/Resolved]
  - Arthropathy [Recovered/Resolved]
  - Psoriatic arthropathy [Unknown]
  - Nerve injury [Recovered/Resolved]
  - Peroneal nerve palsy [Recovered/Resolved]
  - Erythema [Recovered/Resolved]
  - Rash [Recovered/Resolved]
  - Alopecia [Recovered/Resolved]
  - Sensory disturbance [Recovered/Resolved]
  - Mycobacterium test positive [Recovered/Resolved]
  - Lepromatous leprosy [Recovered/Resolved]
  - Skin mass [Recovered/Resolved]

NARRATIVE: CASE EVENT DATE: 2010
